FAERS Safety Report 25505481 (Version 1)
Quarter: 2025Q3

REPORT INFORMATION
  Report Type: Spontaneous
  Country: US (occurrence: US)
  Receive Date: 20250702
  Receipt Date: 20250702
  Transmission Date: 20251021
  Serious: Yes (Hospitalization)
  Sender: DR REDDYS
  Company Number: None

PATIENT
  Age: 16 Year
  Sex: Female

DRUGS (10)
  1. VENLAFAXINE HYDROCHLORIDE [Suspect]
     Active Substance: VENLAFAXINE HYDROCHLORIDE
     Indication: Depression
  2. DULOXETINE [Suspect]
     Active Substance: DULOXETINE
     Indication: Depression
     Dosage: REDUCED TO 30 MG DAILY (FROM 60 MG DAILY) WITH THE INTENT TO TITRATE OFF THE DULOXETINE OVER A ONE-W
  3. DULOXETINE [Suspect]
     Active Substance: DULOXETINE
  4. KAVA [Suspect]
     Active Substance: PIPER METHYSTICUM ROOT
     Indication: Anxiety
  5. KAVA [Suspect]
     Active Substance: PIPER METHYSTICUM ROOT
     Indication: Anxiety
  6. ARIPIPRAZOLE [Concomitant]
     Active Substance: ARIPIPRAZOLE
     Indication: Product used for unknown indication
  7. ZOLPIDEM [Concomitant]
     Active Substance: ZOLPIDEM TARTRATE
     Indication: Product used for unknown indication
  8. ETHINYL ESTRADIOL /NORETHINDRONE [Concomitant]
     Indication: Product used for unknown indication
     Dosage: ETHINYL ESTRADIOL 0.03 MG/NORETHINDRONE 1.5 MG DAILY
  9. GUAIFENESIN, DEXTROMETHORPHAN/ PHENYLEPHRINE [Concomitant]
     Indication: Cough
  10. GUAIFENESIN, DEXTROMETHORPHAN/ PHENYLEPHRINE [Concomitant]
     Indication: Nasopharyngitis

REACTIONS (2)
  - Serotonin syndrome [Recovered/Resolved]
  - Drug interaction [Recovered/Resolved]
